FAERS Safety Report 8583066-7 (Version None)
Quarter: 2012Q2

REPORT INFORMATION
  Report Type: 
  Country: None (occurrence: None)
  Receive Date: 20120423
  Receipt Date: 20091005
  Transmission Date: 20120825
  Serious: Yes (Other)
  Sender: FDA-Public Use
  Company Number: PHEH2009US13077

PATIENT
  Age: 62 Year
  Sex: Female

DRUGS (2)
  1. NSAID'S (NO INGREDIENTS/SUBSTANCES) [Concomitant]
  2. EXJADE [Suspect]
     Dosage: 1500 MG, QD, ORAL
     Route: 048
     Dates: start: 20090911, end: 20091003

REACTIONS (7)
  - UPPER GASTROINTESTINAL HAEMORRHAGE [None]
  - HAEMATEMESIS [None]
  - NAUSEA [None]
  - DECREASED APPETITE [None]
  - DIARRHOEA [None]
  - MALAISE [None]
  - NASOPHARYNGITIS [None]
